FAERS Safety Report 18537720 (Version 1)
Quarter: 2020Q4

REPORT INFORMATION
  Report Type: Spontaneous
  Country: ES (occurrence: ES)
  Receive Date: 20201124
  Receipt Date: 20201124
  Transmission Date: 20210114
  Serious: Yes (Hospitalization, Other)
  Sender: FDA-Public Use
  Company Number: ES-AMGEN-ESPSP2020187708

PATIENT
  Age: 72 Year
  Sex: Male

DRUGS (3)
  1. KYPROLIS [Suspect]
     Active Substance: CARFILZOMIB
     Indication: PLASMA CELL MYELOMA
     Dosage: UNK, DURING THE HOSPITAL STAY, THE PATIENT HAD HAD 18 CYCLES SINCE FEBRUARY 2019
     Route: 042
     Dates: start: 201902
  2. DARZALEX [Suspect]
     Active Substance: DARATUMUMAB
     Indication: PLASMA CELL MYELOMA
     Dosage: UNK, FROM SCHEME DARA-KRD. CYCLE 18 AT THE HOSPITAL ADMISSION DATE
     Route: 042
     Dates: start: 201902
  3. LENALIDOMIDE [Suspect]
     Active Substance: LENALIDOMIDE
     Indication: PLASMA CELL MYELOMA
     Dosage: UNK, FROM SCHEME DARA-KRD. CYCLE 18 AT THE HOSPITAL ADMISSION DATE
     Route: 042
     Dates: start: 201902

REACTIONS (3)
  - Pancytopenia [Recovering/Resolving]
  - Febrile neutropenia [Recovered/Resolved]
  - Diarrhoea [Recovered/Resolved]

NARRATIVE: CASE EVENT DATE: 20200706
